FAERS Safety Report 15806908 (Version 1)
Quarter: 2019Q1

REPORT INFORMATION
  Report Type: Spontaneous
  Country: US (occurrence: US)
  Receive Date: 20190110
  Receipt Date: 20190110
  Transmission Date: 20190417
  Serious: No
  Sender: FDA-Public Use
  Company Number: US-GLAXOSMITHKLINE-US2019GSK003059

PATIENT
  Age: 61 Year
  Sex: Female

DRUGS (2)
  1. BREO ELLIPTA [Suspect]
     Active Substance: FLUTICASONE FUROATE\VILANTEROL TRIFENATATE
     Dosage: UNK
     Dates: start: 201806
  2. VENTOLIN HFA [Suspect]
     Active Substance: ALBUTEROL SULFATE
     Dosage: UNK
     Dates: start: 201806

REACTIONS (2)
  - Nasopharyngitis [Unknown]
  - Bronchitis [Unknown]

NARRATIVE: CASE EVENT DATE: 201812
